FAERS Safety Report 6312435-0 (Version None)
Quarter: 2009Q3

REPORT INFORMATION
  Report Type: 
  Country: None (occurrence: None)
  Receive Date: 20090817
  Receipt Date: 20090812
  Transmission Date: 20100115
  Serious: Yes (Hospitalization)
  Sender: FDA-Public Use
  Company Number: IT-GILEAD-2009-0022566

PATIENT
  Sex: Male
  Weight: 80 kg

DRUGS (4)
  1. VIREAD [Suspect]
     Indication: HEPATITIS B
     Route: 048
     Dates: start: 20081119, end: 20090403
  2. VIREAD [Suspect]
     Route: 048
     Dates: start: 20090529
  3. AULIN [Concomitant]
     Route: 048
     Dates: start: 20090328, end: 20090403
  4. TETRACOSACTIDE [Concomitant]

REACTIONS (3)
  - BACK PAIN [None]
  - PYREXIA [None]
  - RENAL FAILURE [None]
